FAERS Safety Report 20629578 (Version 1)
Quarter: 2022Q1

REPORT INFORMATION
  Report Type: Spontaneous
  Country: DK (occurrence: DK)
  Receive Date: 20220323
  Receipt Date: 20220323
  Transmission Date: 20220424
  Serious: Yes (Death, Hospitalization)
  Sender: FDA-Public Use
  Company Number: None

PATIENT
  Age: 82 Year
  Sex: Male

DRUGS (4)
  1. VEKLURY [Suspect]
     Active Substance: REMDESIVIR
     Indication: COVID-19
     Dosage: DOSAGE: 100 MG IV. GIVEN ON 15 DEC AND 19 DEC.
     Route: 042
     Dates: start: 20211215, end: 20211219
  2. LOSARTAN [Concomitant]
     Active Substance: LOSARTAN
     Indication: Hypertension
     Dosage: STRENGTH: 50 MG
     Route: 048
     Dates: start: 20210703
  3. FUROSEMIDE [Concomitant]
     Active Substance: FUROSEMIDE
     Indication: Diuretic therapy
     Dosage: STRENGTH: 40 MG
     Route: 048
     Dates: start: 20210706
  4. VENTOLIN [Concomitant]
     Active Substance: ALBUTEROL SULFATE
     Indication: Asthma
     Route: 055
     Dates: start: 2015

REACTIONS (2)
  - Hepatic function abnormal [Fatal]
  - Renal impairment [Fatal]

NARRATIVE: CASE EVENT DATE: 20211219
